FAERS Safety Report 17192420 (Version 1)
Quarter: 2019Q4

REPORT INFORMATION
  Report Type: Spontaneous
  Country: SE (occurrence: SE)
  Receive Date: 20191223
  Receipt Date: 20191223
  Transmission Date: 20200122
  Serious: Yes (Hospitalization, Other)
  Sender: FDA-Public Use
  Company Number: SE-SA-2019SA350578

PATIENT
  Age: 51 Year
  Sex: Female

DRUGS (5)
  1. PROPAVAN [Suspect]
     Active Substance: PROPIOMAZINE
     Dosage: UNKNOWN AMOUNT
     Route: 048
     Dates: start: 20190512, end: 20190512
  2. OXAZEPAM. [Suspect]
     Active Substance: OXAZEPAM
     Dosage: UNKNOWN AMOUNT
     Dates: start: 20190512, end: 20190512
  3. STILNOCT [Suspect]
     Active Substance: ZOLPIDEM TARTRATE
     Dosage: MAXIMUM 30
     Dates: start: 20190512, end: 20190512
  4. ACETYLSALICYLIC ACID/CAFFEINE [Suspect]
     Active Substance: ASPIRIN\CAFFEINE
     Dosage: 3-4 UNITS
     Dates: start: 20190512, end: 20190512
  5. MIRTAZAPINE. [Suspect]
     Active Substance: MIRTAZAPINE
     Dosage: UNKNOWN AMOUNT
     Dates: start: 20190512, end: 20190512

REACTIONS (5)
  - Intentional self-injury [Unknown]
  - Oxygen saturation decreased [Unknown]
  - Depressed level of consciousness [Unknown]
  - Electrocardiogram ST segment depression [Unknown]
  - Intentional overdose [Unknown]

NARRATIVE: CASE EVENT DATE: 20190512
